FAERS Safety Report 9444356 (Version 1)
Quarter: 2013Q3

REPORT INFORMATION
  Report Type: Spontaneous
  Country: DE (occurrence: DE)
  Receive Date: 20130807
  Receipt Date: 20130807
  Transmission Date: 20140515
  Serious: Yes (Hospitalization)
  Sender: FDA-Public Use
  Company Number: DE-JNJFOC-20130718937

PATIENT
  Sex: Female

DRUGS (3)
  1. YONDELIS [Suspect]
     Indication: OVARIAN CANCER METASTATIC
     Route: 042
     Dates: start: 20130429, end: 20130429
  2. CAELYX [Suspect]
     Indication: OVARIAN CANCER METASTATIC
     Route: 042
     Dates: start: 20130429, end: 20130429
  3. CAELYX [Suspect]
     Indication: OVARIAN CANCER METASTATIC
     Route: 042
     Dates: start: 201211, end: 201302

REACTIONS (2)
  - Gastrointestinal pain [Recovering/Resolving]
  - Abdominal pain upper [Recovering/Resolving]
